FAERS Safety Report 24015913 (Version 3)
Quarter: 2024Q3

REPORT INFORMATION
  Report Type: Spontaneous
  Country: US (occurrence: US)
  Receive Date: 20240626
  Receipt Date: 20240912
  Transmission Date: 20241017
  Serious: No
  Sender: CALLIDITAS THERAPEUTICS
  Company Number: US-Calliditas-2024CAL00737

PATIENT
  Age: 58 Year
  Sex: Male

DRUGS (1)
  1. TARPEYO [Suspect]
     Active Substance: BUDESONIDE
     Indication: IgA nephropathy
     Route: 048
     Dates: start: 20240403

REACTIONS (3)
  - Product dose omission issue [Unknown]
  - Product supply issue [Unknown]
  - Blood creatinine increased [Unknown]
